FAERS Safety Report 9862338 (Version 2)
Quarter: 2014Q1

REPORT INFORMATION
  Report Type: Report from Study
  Country: DE (occurrence: DE)
  Receive Date: 20140203
  Receipt Date: 20140214
  Transmission Date: 20141002
  Serious: Yes (Other)
  Sender: FDA-Public Use
  Company Number: DE-NOVOPROD-398568

PATIENT
  Age: 17 Year
  Sex: Female
  Weight: 47 kg

DRUGS (1)
  1. NORDITROPIN FLEXPRO [Suspect]
     Indication: MICROSOMIA
     Dosage: 2 MG, QD
     Route: 058
     Dates: start: 20120111, end: 20131119

REACTIONS (1)
  - Glycosylated haemoglobin increased [Not Recovered/Not Resolved]
